FAERS Safety Report 8616489-8 (Version None)
Quarter: 2012Q3

REPORT INFORMATION
  Report Type: 
  Country: None (occurrence: None)
  Receive Date: 20120823
  Receipt Date: 20120821
  Transmission Date: 20120928
  Serious: Yes (Death, Other)
  Sender: FDA-Public Use
  Company Number: AU-ELI_LILLY_AND_COMPANY-AU201208007024

PATIENT
  Sex: Male

DRUGS (14)
  1. ZOCOR [Concomitant]
     Dosage: 80 MG, QD
  2. LANTUS [Concomitant]
  3. ACTOS [Suspect]
     Dosage: 15 MG, QD
  4. ALDOMET [Concomitant]
     Dosage: 250 MG, TID
  5. RAMIPRIL [Concomitant]
     Dosage: 10 MG, QD
  6. DUATROL [Concomitant]
     Dosage: 2 DF, PRN
  7. IRBESARTAN AND HYDROCHLOROTHIAZIDE [Concomitant]
     Dosage: 1 DF, QD
  8. NEXIUM [Concomitant]
     Dosage: 20 MG, QD
  9. NOVORAPID [Concomitant]
  10. PRISTIQ [Concomitant]
     Indication: DEPRESSION
     Dosage: 50 MG, QD
  11. METFORMIN HCL [Concomitant]
     Dosage: 1000 MG, BID
  12. METOPROLOL TARTRATE [Concomitant]
     Dosage: 1 DF, BID
  13. ASPIRIN [Concomitant]
     Dosage: 100 MG, QD
  14. LERCANIDIPINE [Concomitant]
     Dosage: 20 MG, QD

REACTIONS (2)
  - HYPONATRAEMIA [None]
  - DEATH [None]
